FAERS Safety Report 24000676 (Version 1)
Quarter: 2024Q2

REPORT INFORMATION
  Report Type: Spontaneous
  Country: IN (occurrence: IN)
  Receive Date: 20240621
  Receipt Date: 20240621
  Transmission Date: 20240716
  Serious: Yes (Other)
  Sender: FDA-Public Use
  Company Number: IN-RDY-LIT/IND/24/0008876

PATIENT
  Age: 19 Year
  Sex: Male

DRUGS (8)
  1. CAPECITABINE [Suspect]
     Active Substance: CAPECITABINE
     Indication: Colorectal adenocarcinoma
     Dosage: 22 CYCLES
  2. CAPECITABINE [Suspect]
     Active Substance: CAPECITABINE
     Indication: Metastases to peritoneum
  3. PACLITAXEL [Concomitant]
     Active Substance: PACLITAXEL
     Indication: Colorectal adenocarcinoma
     Dosage: 1?CYCLE
     Route: 033
  4. PACLITAXEL [Concomitant]
     Active Substance: PACLITAXEL
     Indication: Metastases to peritoneum
  5. capecitabine and oxaliplatin [Concomitant]
     Indication: Colorectal adenocarcinoma
     Dosage: 11?CYCLES
  6. capecitabine and oxaliplatin [Concomitant]
     Indication: Metastases to peritoneum
  7. IRINOTECAN [Concomitant]
     Active Substance: IRINOTECAN
     Indication: Colorectal adenocarcinoma
     Dosage: 11?CYCLES
  8. IRINOTECAN [Concomitant]
     Active Substance: IRINOTECAN
     Indication: Metastases to peritoneum

REACTIONS (2)
  - Malignant neoplasm progression [Unknown]
  - Drug ineffective [Unknown]
